FAERS Safety Report 5847674-6 (Version None)
Quarter: 2008Q3

REPORT INFORMATION
  Report Type: 
  Country: None (occurrence: None)
  Receive Date: 20080818
  Receipt Date: 20080807
  Transmission Date: 20090109
  Serious: Yes (Hospitalization, Other)
  Sender: FDA-Public Use
  Company Number: US-AMGEN-QUU300040

PATIENT
  Sex: Male

DRUGS (12)
  1. ARANESP [Suspect]
     Indication: RENAL FAILURE CHRONIC
     Dates: start: 20070101
  2. ZOCOR [Concomitant]
  3. TRICOR [Concomitant]
  4. PLAVIX [Concomitant]
  5. COUMADIN [Concomitant]
  6. HYDRALAZINE HCL [Concomitant]
  7. ISOSORBIDE [Concomitant]
  8. GLIPIZIDE [Concomitant]
  9. COSOPT [Concomitant]
  10. XALATAN [Concomitant]
  11. SEROQUEL [Concomitant]
  12. FOLIC ACID [Concomitant]

REACTIONS (6)
  - DEHYDRATION [None]
  - DYSPHAGIA [None]
  - HYPERSOMNIA [None]
  - POOR PERIPHERAL CIRCULATION [None]
  - SKIN ULCER [None]
  - WEIGHT DECREASED [None]
